FAERS Safety Report 5426267-9 (Version None)
Quarter: 2007Q3

REPORT INFORMATION
  Report Type: 
  Country: None (occurrence: None)
  Receive Date: 20070731
  Receipt Date: 20070405
  Transmission Date: 20080115
  Serious: No
  Sender: FDA-Public Use
  Company Number: 2007PV029531

PATIENT
  Age: 47 Year
  Sex: Male

DRUGS (2)
  1. BYETTA [Suspect]
     Indication: TYPE 2 DIABETES MELLITUS
     Dosage: 5 UG, 2/D, SUBCUTANEOUS
     Route: 058
     Dates: start: 20070201
  2. METFORMIN HCL [Concomitant]

REACTIONS (4)
  - DECREASED APPETITE [None]
  - FEELING COLD [None]
  - FEELING JITTERY [None]
  - STOMACH DISCOMFORT [None]
